FAERS Safety Report 4539011-4 (Version None)
Quarter: 2004Q4

REPORT INFORMATION
  Report Type: 
  Country: None (occurrence: None)
  Receive Date: 20041222
  Receipt Date: 20041202
  Transmission Date: 20050328
  Serious: Yes (Other)
  Sender: FDA-Public Use
  Company Number: US_0411108267

PATIENT
  Age: 12 Year
  Sex: Female

DRUGS (2)
  1. STRATTERA [Suspect]
     Indication: ATTENTION DEFICIT/HYPERACTIVITY DISORDER
     Dosage: 40 MG DAY
     Dates: start: 20030803, end: 20041101
  2. ADDERALL 10 [Concomitant]

REACTIONS (5)
  - CONVULSION [None]
  - GASTRITIS [None]
  - NERVOUS SYSTEM DISORDER [None]
  - OESOPHAGITIS [None]
  - PAIN [None]
